FAERS Safety Report 25761337 (Version 2)
Quarter: 2025Q4

REPORT INFORMATION
  Report Type: Spontaneous
  Country: CA (occurrence: CA)
  Receive Date: 20250904
  Receipt Date: 20251027
  Transmission Date: 20260118
  Serious: Yes (Other)
  Sender: PFIZER
  Company Number: CA-PFIZER INC-202500174398

PATIENT
  Age: 49 Year

DRUGS (1)
  1. ADALIMUMAB [Suspect]
     Active Substance: ADALIMUMAB
     Dosage: 1 DF, UNKNOWN DOSE AND TREATMENT DATES(UNKNOWN BRAND)

REACTIONS (1)
  - Cardiac failure [Unknown]
